FAERS Safety Report 6120993-4 (Version None)
Quarter: 2009Q1

REPORT INFORMATION
  Report Type: 
  Country: None (occurrence: None)
  Receive Date: 20090317
  Receipt Date: 20090306
  Transmission Date: 20090719
  Serious: Yes (Hospitalization)
  Sender: FDA-Public Use
  Company Number: NL-AVENTIS-200911190GDDC

PATIENT
  Age: 52 Year
  Sex: Female
  Weight: 84 kg

DRUGS (4)
  1. DOCETAXEL [Suspect]
     Route: 042
     Dates: start: 20081212, end: 20081212
  2. OTHER ANTINEOPLASTIC AGENTS [Suspect]
     Route: 042
     Dates: start: 20081211, end: 20081211
  3. METFORMIN HCL [Concomitant]
  4. PANTOPRAZOLE SODIUM [Concomitant]

REACTIONS (1)
  - FISTULA [None]
